FAERS Safety Report 26017835 (Version 2)
Quarter: 2025Q4

REPORT INFORMATION
  Report Type: Spontaneous
  Country: JP (occurrence: JP)
  Receive Date: 20251110
  Receipt Date: 20251111
  Transmission Date: 20260118
  Serious: Yes (Other)
  Sender: ABBVIE
  Company Number: JP-ABBVIE-6535419

PATIENT

DRUGS (1)
  1. RINVOQ [Suspect]
     Active Substance: UPADACITINIB
     Indication: Psoriatic arthropathy
     Dosage: FORM STRENGTH: 15 MILLIGRAM
     Route: 048

REACTIONS (21)
  - Colon cancer [Unknown]
  - Urinary tract infection [Unknown]
  - Arthritis bacterial [Unknown]
  - Herpes zoster disseminated [Unknown]
  - Herpes zoster [Unknown]
  - Lung abscess [Unknown]
  - Bile duct cancer [Unknown]
  - Feeding disorder [Unknown]
  - Drug ineffective [Unknown]
  - Accident [Unknown]
  - Lung neoplasm malignant [Unknown]
  - Interstitial lung disease [Unknown]
  - Respiratory tract infection [Unknown]
  - Skin infection [Unknown]
  - Pyelonephritis [Unknown]
  - Drug hypersensitivity [Unknown]
  - Hepatic neoplasm [Unknown]
  - Gastrointestinal infection [Unknown]
  - Bone tuberculosis [Unknown]
  - Thrombosis [Unknown]
  - Skin infection [Unknown]
